FAERS Safety Report 13463873 (Version 1)
Quarter: 2017Q2

REPORT INFORMATION
  Report Type: Spontaneous
  Country: US (occurrence: US)
  Receive Date: 20170420
  Receipt Date: 20170420
  Transmission Date: 20170830
  Serious: Yes (Other)
  Sender: FDA-Public Use
  Company Number: US-ROCHE-659107

PATIENT
  Age: 18 Year
  Sex: Female
  Weight: 54.4 kg

DRUGS (10)
  1. ACCUTANE [Suspect]
     Active Substance: ISOTRETINOIN
     Dosage: 80 MG DAILY AND 40 MG EVERY ALTERNATE DAY
     Route: 048
  2. LOESTRIN NOS [Concomitant]
     Active Substance: ETHINYL ESTRADIOL\NORETHINDRONE ACETATE
     Indication: CONTRACEPTION
     Route: 065
  3. TRIPHASIL [Concomitant]
     Active Substance: ETHINYL ESTRADIOL\LEVONORGESTREL
     Indication: CONTRACEPTION
     Route: 065
  4. RECLIPSEN [Concomitant]
     Active Substance: DESOGESTREL\ETHINYL ESTRADIOL
     Indication: CONTRACEPTION
     Route: 065
  5. ACCUTANE [Suspect]
     Active Substance: ISOTRETINOIN
     Indication: ACNE
     Dosage: 40 MG INMORNING AND 20 MG IN EVENING
     Route: 048
     Dates: start: 20020109, end: 20020314
  6. ACCUTANE [Suspect]
     Active Substance: ISOTRETINOIN
     Route: 048
  7. DEMULEN [Concomitant]
     Active Substance: ETHINYL ESTRADIOL\ETHYNODIOL
     Indication: CONTRACEPTION
     Route: 065
  8. DESOGEN [Concomitant]
     Active Substance: DESOGESTREL\ETHINYL ESTRADIOL
     Indication: CONTRACEPTION
     Route: 065
  9. ORTHO TRI CYCLEN [Concomitant]
     Active Substance: ETHINYL ESTRADIOL\NORGESTIMATE
     Indication: CONTRACEPTION
     Route: 065
  10. ACCUTANE [Suspect]
     Active Substance: ISOTRETINOIN
     Dosage: 80 MG DAILY AND 40 MG EVERY ALTERNATE DAY
     Route: 048
     Dates: start: 20020315, end: 20020520

REACTIONS (7)
  - Depression [Unknown]
  - Oral herpes [Unknown]
  - Arthralgia [Unknown]
  - Chapped lips [Recovered/Resolved]
  - Colitis ulcerative [Unknown]
  - Angular cheilitis [Unknown]
  - Inflammatory bowel disease [Unknown]

NARRATIVE: CASE EVENT DATE: 20020214
